FAERS Safety Report 16749449 (Version 1)
Quarter: 2019Q3

REPORT INFORMATION
  Report Type: Spontaneous
  Country: GB (occurrence: GB)
  Receive Date: 20190828
  Receipt Date: 20190828
  Transmission Date: 20191005
  Serious: Yes (Hospitalization)
  Sender: FDA-Public Use
  Company Number: GB-ACCORD-152865

PATIENT
  Age: 47 Year
  Sex: Male
  Weight: 74 kg

DRUGS (11)
  1. PROPRANOLOL [Concomitant]
     Active Substance: PROPRANOLOL HYDROCHLORIDE
     Dates: start: 20180815
  2. ZOPICLONE [Concomitant]
     Active Substance: ZOPICLONE
     Dosage: AT NIGHT
     Dates: start: 20180815
  3. LANSOPRAZOLE. [Concomitant]
     Active Substance: LANSOPRAZOLE
     Dosage: CHANGED BY HOSPITAL TEAM IN MARCH 2019
     Dates: start: 20180815
  4. RANITIDINE. [Concomitant]
     Active Substance: RANITIDINE
     Dosage: TAKE ONE TWICE DAILY
     Dates: start: 20181120
  5. CLONAZEPAM. [Concomitant]
     Active Substance: CLONAZEPAM
     Dosage: AT 6PM
     Dates: start: 20180815
  6. ANORO ELLIPTA [Concomitant]
     Active Substance: UMECLIDINIUM BROMIDE\VILANTEROL TRIFENATATE
     Dosage: (UMECLIDINIUM/VILANTEROL)
     Route: 055
     Dates: start: 20190328
  7. CLOZAPINE. [Suspect]
     Active Substance: CLOZAPINE
     Indication: PRODUCT USED FOR UNKNOWN INDICATION
     Dates: start: 20190724
  8. AMISULPRIDE [Concomitant]
     Active Substance: AMISULPRIDE
     Dosage: TWO IN THE MORNING AND THREE AT NIGHT
     Dates: start: 20180815
  9. FORTISIP [Concomitant]
     Active Substance: CARBOHYDRATES\FATTY ACIDS\MINERALS\PROTEIN\VITAMINS
     Dosage: USE AS DIRECTED
     Dates: start: 20190415
  10. DEPAKOTE [Concomitant]
     Active Substance: DIVALPROEX SODIUM
     Dosage: EACH NIGHT
     Dates: start: 20180815
  11. SALBUTAMOL [Concomitant]
     Active Substance: ALBUTEROL
     Route: 055
     Dates: start: 20180815

REACTIONS (1)
  - Pericardial effusion [Recovered/Resolved]

NARRATIVE: CASE EVENT DATE: 20190724
